FAERS Safety Report 6987173-1 (Version None)
Quarter: 2010Q3

REPORT INFORMATION
  Report Type: 
  Country: None (occurrence: None)
  Receive Date: 20100916
  Receipt Date: 20100913
  Transmission Date: 20110219
  Serious: Yes (Other)
  Sender: FDA-Public Use
  Company Number: CA-PFIZER INC-2010083459

PATIENT
  Age: 73 Year
  Sex: Female
  Weight: 73.923 kg

DRUGS (6)
  1. CELEBREX [Suspect]
     Indication: SCIATICA
     Dosage: 100 MG, 2X/DAY
     Dates: start: 20050101, end: 20060101
  2. CELEBREX [Suspect]
     Indication: DEEP VEIN THROMBOSIS
     Dosage: 100 MG, SINGLE
     Dates: start: 20100630
  3. CELEBREX [Suspect]
     Indication: MUSCLE INJURY
  4. WARFARIN SODIUM [Concomitant]
     Indication: THROMBOPHLEBITIS
     Dosage: 4 MG, 1X/DAILY FOR 6 DAYS
     Dates: start: 20010101
  5. WARFARIN SODIUM [Concomitant]
     Dosage: 2 MG, 1DAILY FOR 1 DAY
     Dates: start: 20010101
  6. SYNTHROID [Concomitant]
     Indication: HYPOTHYROIDISM
     Dosage: 0.112 MG, 1X/DAY
     Dates: start: 19720101

REACTIONS (6)
  - BLOOD PRESSURE INCREASED [None]
  - CHILLS [None]
  - FATIGUE [None]
  - MALAISE [None]
  - MUSCLE SPASMS [None]
  - TREMOR [None]
